FAERS Safety Report 13425591 (Version 2)
Quarter: 2021Q2

REPORT INFORMATION
  Report Type: Spontaneous
  Country: US (occurrence: US)
  Receive Date: 20170411
  Receipt Date: 20210408
  Transmission Date: 20210716
  Serious: No
  Sender: FDA-Public Use
  Company Number: US-BIOGEN-2017BI00383290

PATIENT
  Sex: Female

DRUGS (2)
  1. TECFIDERA [Suspect]
     Active Substance: DIMETHYL FUMARATE
     Indication: MULTIPLE SCLEROSIS
     Route: 065
     Dates: start: 20170324, end: 20201001
  2. TECFIDERA [Suspect]
     Active Substance: DIMETHYL FUMARATE
     Dosage: MAINTENANCE DOSE
     Route: 048

REACTIONS (6)
  - Colitis [Unknown]
  - Pain [Unknown]
  - Vulvovaginal pruritus [Unknown]
  - Haemorrhoidal haemorrhage [Not Recovered/Not Resolved]
  - Swelling [Unknown]
  - Hypersensitivity [Unknown]
